FAERS Safety Report 5509409-6 (Version None)
Quarter: 2007Q4

REPORT INFORMATION
  Report Type: 
  Country: None (occurrence: None)
  Receive Date: 20071107
  Receipt Date: 20071026
  Transmission Date: 20080405
  Serious: Yes (Other)
  Sender: FDA-Public Use
  Company Number: US-PFIZER INC-2007091028

PATIENT
  Sex: Male

DRUGS (2)
  1. EXUBERA [Suspect]
     Indication: DIABETES MELLITUS
     Dates: start: 20070101, end: 20070101
  2. INSULIN [Concomitant]

REACTIONS (3)
  - CARDIAC STRESS TEST ABNORMAL [None]
  - DYSPNOEA [None]
  - UNEVALUABLE EVENT [None]
